FAERS Safety Report 8485563-1 (Version None)
Quarter: 2012Q2

REPORT INFORMATION
  Report Type: 
  Country: None (occurrence: None)
  Receive Date: 20120627
  Receipt Date: 20120627
  Transmission Date: 20120825
  Serious: Yes (Other)
  Sender: FDA-Public Use
  Company Number: None

PATIENT
  Sex: Male

DRUGS (15)
  1. PROGRAPH [Concomitant]
  2. METAPOLO [Concomitant]
  3. PLAVIX [Concomitant]
  4. BABY ASPRIN [Concomitant]
  5. MULTI-VITAMIN [Concomitant]
  6. FREE STYLE TEST STRIPS [Concomitant]
  7. CELLCEPT [Concomitant]
  8. COCREAE [Concomitant]
  9. RAPAMUNE [Suspect]
     Indication: NEOPLASM MALIGNANT
     Dosage: 2MG ONCE A DAY PO
     Route: 048
     Dates: start: 20120502, end: 20120622
  10. WAROPHEN [Concomitant]
  11. PREDNISONE [Concomitant]
  12. ASPIRIN [Concomitant]
  13. FUROSEMIDE [Concomitant]
  14. PRAVASTATIN SODIUM [Concomitant]
  15. ALFUZOAIN [Concomitant]

REACTIONS (9)
  - FATIGUE [None]
  - VISION BLURRED [None]
  - DECREASED APPETITE [None]
  - BLOOD GLUCOSE DECREASED [None]
  - CONSTIPATION [None]
  - ANURIA [None]
  - ATRIAL FIBRILLATION [None]
  - DIABETES MELLITUS [None]
  - OEDEMA [None]
